FAERS Safety Report 19898807 (Version 6)
Quarter: 2023Q4

REPORT INFORMATION
  Report Type: Spontaneous
  Country: JP (occurrence: JP)
  Receive Date: 20210929
  Receipt Date: 20231123
  Transmission Date: 20240110
  Serious: Yes (Life-Threatening, Other)
  Sender: FDA-Public Use
  Company Number: JP-BRISTOL-MYERS SQUIBB COMPANY-BMS-2021-015298

PATIENT
  Age: 75 Year
  Sex: Male
  Weight: 63.8 kg

DRUGS (4)
  1. OPDIVO [Suspect]
     Active Substance: NIVOLUMAB
     Indication: Colorectal cancer
     Route: 041
     Dates: start: 20210107, end: 20210311
  2. OPDIVO [Suspect]
     Active Substance: NIVOLUMAB
     Dosage: 240 MILLIGRAM
     Route: 041
     Dates: start: 20210128, end: 20210311
  3. YERVOY [Suspect]
     Active Substance: IPILIMUMAB
     Indication: Colorectal cancer
     Route: 041
     Dates: start: 20210107, end: 20210311
  4. YERVOY [Suspect]
     Active Substance: IPILIMUMAB
     Dosage: 66 MILLIGRAM
     Route: 041
     Dates: start: 20210128, end: 20210311

REACTIONS (7)
  - Malignant neoplasm progression [Unknown]
  - Arthralgia [Unknown]
  - Drug-device incompatibility [Unknown]
  - Immune-mediated adrenal insufficiency [Recovering/Resolving]
  - Adrenocorticotropic hormone deficiency [Recovering/Resolving]
  - Immune-mediated hypophysitis [Recovering/Resolving]
  - Immune-mediated hypothyroidism [Recovering/Resolving]

NARRATIVE: CASE EVENT DATE: 20210301
